FAERS Safety Report 5518827-1 (Version None)
Quarter: 2007Q4

REPORT INFORMATION
  Report Type: 
  Country: None (occurrence: None)
  Receive Date: 20071115
  Receipt Date: 20071030
  Transmission Date: 20080405
  Serious: Yes (Other)
  Sender: FDA-Public Use
  Company Number: CA-GENENTECH-251352

PATIENT
  Sex: Female

DRUGS (5)
  1. RITUXAN [Suspect]
     Indication: B-CELL LYMPHOMA
     Dosage: UNK, Q4W
     Route: 042
     Dates: start: 20060801, end: 20070101
  2. RITUXAN [Suspect]
     Dosage: UNK, Q3M
     Dates: start: 20070821
  3. FLUDARABINE PHOSPHATE [Concomitant]
     Indication: B-CELL LYMPHOMA
     Dosage: UNK, Q4W
     Dates: start: 20060801, end: 20070101
  4. MITOXANTRONE [Concomitant]
     Indication: B-CELL LYMPHOMA
     Dosage: UNK, Q4W
     Dates: start: 20060801, end: 20070101
  5. NEUPOGEN [Concomitant]
     Indication: DRUG USE FOR UNKNOWN INDICATION

REACTIONS (2)
  - NEUTROPENIA [None]
  - RENAL FAILURE [None]
